FAERS Safety Report 19701211 (Version 1)
Quarter: 2021Q3

REPORT INFORMATION
  Report Type: Spontaneous
  Country: US (occurrence: US)
  Receive Date: 20210813
  Receipt Date: 20210813
  Transmission Date: 20211014
  Serious: Yes (Hospitalization)
  Sender: FDA-Public Use
  Company Number: US-ABBVIE-21K-163-4038880-00

PATIENT
  Age: 77 Year
  Sex: Male

DRUGS (2)
  1. HUMIRA [Suspect]
     Active Substance: ADALIMUMAB
     Indication: COLITIS ULCERATIVE
     Route: 058
     Dates: start: 202105
  2. SPIRIVA RESPIMAT [Concomitant]
     Active Substance: TIOTROPIUM BROMIDE
     Indication: ASTHMA

REACTIONS (9)
  - Joint swelling [Recovering/Resolving]
  - Colitis [Recovering/Resolving]
  - Decreased appetite [Recovering/Resolving]
  - Malaise [Recovering/Resolving]
  - Balance disorder [Recovering/Resolving]
  - Wrong technique in product usage process [Unknown]
  - Cellulitis [Recovering/Resolving]
  - Frequent bowel movements [Recovering/Resolving]
  - Peripheral swelling [Recovering/Resolving]

NARRATIVE: CASE EVENT DATE: 202106
